FAERS Safety Report 6375435-0 (Version None)
Quarter: 2009Q3

REPORT INFORMATION
  Report Type: 
  Country: None (occurrence: None)
  Receive Date: 20090924
  Receipt Date: 20090921
  Transmission Date: 20100115
  Serious: Yes (Other)
  Sender: FDA-Public Use
  Company Number: US-JNJFOC-20090304708

PATIENT
  Sex: Female
  Weight: 61.24 kg

DRUGS (7)
  1. TOPAMAX [Suspect]
     Indication: MIGRAINE PROPHYLAXIS
     Route: 048
  2. DEPAKOTE [Concomitant]
  3. ASPIRIN [Concomitant]
  4. ULTRAM [Concomitant]
     Indication: BACK PAIN
     Route: 048
  5. CALCIUM [Concomitant]
  6. MAGNESIUM [Concomitant]
  7. VITAMIN D [Concomitant]

REACTIONS (1)
  - DEAFNESS [None]
